FAERS Safety Report 4966417-1 (Version None)
Quarter: 2006Q2

REPORT INFORMATION
  Report Type: 
  Country: None (occurrence: None)
  Receive Date: 20060407
  Receipt Date: 20060327
  Transmission Date: 20061013
  Serious: Yes (Other)
  Sender: FDA-Public Use
  Company Number: BE-ROCHE-441818

PATIENT
  Age: 66 Year
  Sex: Male

DRUGS (4)
  1. XENICAL [Suspect]
     Indication: DRUG USE FOR UNKNOWN INDICATION
     Route: 048
     Dates: start: 20051215, end: 20060315
  2. RENITEC [Concomitant]
     Route: 048
  3. LIPITOR [Concomitant]
     Route: 048
  4. SIMVASTATIN [Concomitant]
     Route: 048

REACTIONS (3)
  - BLOOD AMYLASE INCREASED [None]
  - HEPATIC CYST [None]
  - LIPASE INCREASED [None]
